FAERS Safety Report 15672760 (Version 1)
Quarter: 2018Q4

REPORT INFORMATION
  Report Type: Report from Study
  Country: US (occurrence: US)
  Receive Date: 20181129
  Receipt Date: 20181129
  Transmission Date: 20190205
  Serious: Yes (Other)
  Sender: FDA-Public Use
  Company Number: US-TESARO, INC-US-2018TSO00288

PATIENT
  Age: 61 Year
  Sex: Female

DRUGS (3)
  1. WARFARIN [Concomitant]
     Active Substance: WARFARIN
     Indication: PRODUCT USED FOR UNKNOWN INDICATION
     Dosage: UNK
  2. ZEJULA [Suspect]
     Active Substance: NIRAPARIB
     Indication: OVARIAN CANCER
     Dosage: 200 MG, QD
     Route: 048
     Dates: start: 20171201, end: 20171220
  3. ZEJULA [Suspect]
     Active Substance: NIRAPARIB
     Dosage: 100 MG, DAILY PM (AFTERNOON) WITH AND WITHOUT FOOD
     Route: 048
     Dates: start: 20180109

REACTIONS (8)
  - Platelet count decreased [Not Recovered/Not Resolved]
  - Contusion [Recovering/Resolving]
  - Haemoglobin decreased [Recovered/Resolved]
  - Epistaxis [Recovered/Resolved]
  - Dyspepsia [Not Recovered/Not Resolved]
  - Underdose [Unknown]
  - International normalised ratio decreased [Recovering/Resolving]
  - Skin disorder [Recovered/Resolved]

NARRATIVE: CASE EVENT DATE: 20171201
